FAERS Safety Report 15789499 (Version 1)
Quarter: 2019Q1

REPORT INFORMATION
  Report Type: Spontaneous
  Country: BR (occurrence: BR)
  Receive Date: 20190104
  Receipt Date: 20190104
  Transmission Date: 20190417
  Serious: Yes (Hospitalization)
  Sender: FDA-Public Use
  Company Number: BR-MYLANLABS-2018M1097001

PATIENT
  Age: 57 Year
  Sex: Male

DRUGS (10)
  1. ABCIXIMAB [Suspect]
     Active Substance: ABCIXIMAB
     Indication: ANTIPLATELET THERAPY
     Dosage: LOADING DOSE
     Route: 050
  2. ABCIXIMAB [Suspect]
     Active Substance: ABCIXIMAB
     Dosage: UNK
     Route: 050
  3. PRASUGREL. [Concomitant]
     Active Substance: PRASUGREL
     Indication: ANTIPLATELET THERAPY
     Dosage: PERIPROCEDURAL LOADING DOSE ADMINISTERED AT THE TIME OF SECOND ASPIRATION THROMBECTOMY
     Route: 065
  4. CLOPIDOGREL [Suspect]
     Active Substance: CLOPIDOGREL BISULFATE
     Indication: ANTIPLATELET THERAPY
     Dosage: LOADING DOSE
     Route: 048
  5. ASPIRIN                            /00002701/ [Concomitant]
     Active Substance: ASPIRIN
     Indication: PRODUCT USED FOR UNKNOWN INDICATION
     Dosage: LOADING DOSE
     Route: 065
  6. ABCIXIMAB [Suspect]
     Active Substance: ABCIXIMAB
     Dosage: LOADING DOSE (PERIPHERALLY DELIVERED)
     Route: 065
  7. ASPIRIN                            /00002701/ [Concomitant]
     Active Substance: ASPIRIN
     Dosage: MAINTENANCE DOSE
     Route: 065
  8. EVEROLIMUS. [Concomitant]
     Active Substance: EVEROLIMUS
     Indication: PRODUCT USED FOR UNKNOWN INDICATION
     Dosage: DRUG ELUTING STENTS WERE PLACED IN THE PROXIMAL SEGMENT AND BOTH THE POSTERIOR DESCENDING AND VEN...
     Route: 050
  9. CLOPIDOGREL [Suspect]
     Active Substance: CLOPIDOGREL BISULFATE
     Dosage: MAINTENANCE DOSE
     Route: 065
  10. HEPARIN [Concomitant]
     Active Substance: HEPARIN SODIUM
     Indication: PRODUCT USED FOR UNKNOWN INDICATION
     Dosage: 5000U; LATER ADMINISTERED AGAIN ONE TIME
     Route: 065

REACTIONS (4)
  - Rash macular [Recovered/Resolved]
  - Hypersensitivity [Recovering/Resolving]
  - Kounis syndrome [Recovering/Resolving]
  - Vascular stent thrombosis [Recovered/Resolved]
